FAERS Safety Report 13602756 (Version 2)
Quarter: 2017Q2

REPORT INFORMATION
  Report Type: Report from Study
  Country: KR (occurrence: KR)
  Receive Date: 20170601
  Receipt Date: 20170613
  Transmission Date: 20170830
  Serious: Yes (Hospitalization, Other)
  Sender: FDA-Public Use
  Company Number: KR-GILEAD-2017-0275151

PATIENT
  Age: 45 Year
  Sex: Female

DRUGS (51)
  1. DEFLAZACORT [Concomitant]
     Active Substance: DEFLAZACORT
     Dosage: 24 MG, QD
     Dates: start: 20160417, end: 20160423
  2. DEFLAZACORT [Concomitant]
     Active Substance: DEFLAZACORT
     Dosage: 6 MG, QD
     Dates: start: 20161215
  3. MIRTAZAPINE. [Concomitant]
     Active Substance: MIRTAZAPINE
     Dosage: 7.5 MG, QD
     Dates: start: 20160623, end: 20160706
  4. MEDILAC DS [Concomitant]
  5. ZOLPIDEM [Concomitant]
     Active Substance: ZOLPIDEM\ZOLPIDEM TARTRATE
     Dosage: 10 MG, PRN
     Dates: start: 20160623, end: 20160706
  6. TRAMADOL HYDROCHLORIDE. [Concomitant]
     Active Substance: TRAMADOL HYDROCHLORIDE
     Dosage: 50 MG, QD
     Dates: start: 20161114, end: 20161114
  7. CODEINE PHOSPHATE [Concomitant]
     Active Substance: CODEINE PHOSPHATE
     Dosage: 1 DF, QID
     Dates: start: 20170320, end: 20170325
  8. CHLORPHENIRAMINE MALEATE. [Concomitant]
     Active Substance: CHLORPHENIRAMINE MALEATE
  9. ACETAMINOPHEN. [Concomitant]
     Active Substance: ACETAMINOPHEN
  10. PRUCALOPRIDE [Concomitant]
     Active Substance: PRUCALOPRIDE
  11. CEFUROXIME. [Concomitant]
     Active Substance: CEFUROXIME
  12. CALTEO-40 TABLET [Concomitant]
  13. DEFLAZACORT [Concomitant]
     Active Substance: DEFLAZACORT
     Dosage: 9 MG, QD
     Dates: start: 20160526, end: 20160622
  14. MELATONIN [Concomitant]
     Active Substance: MELATONIN
  15. VALSARTAN. [Concomitant]
     Active Substance: VALSARTAN
  16. FEBUXOSTAT. [Concomitant]
     Active Substance: FEBUXOSTAT
  17. SPIRONOLACTONE. [Concomitant]
     Active Substance: SPIRONOLACTONE
     Dosage: 25 MG, QD
     Dates: start: 20161026
  18. DEFLAZACORT [Concomitant]
     Active Substance: DEFLAZACORT
     Dosage: 15 MG, QD
     Dates: start: 20160508, end: 20160514
  19. MOSAPRIDE CITRATE [Concomitant]
     Active Substance: MOSAPRIDE CITRATE
  20. LEVOFLOXACIN. [Concomitant]
     Active Substance: LEVOFLOXACIN
  21. ROSUVASTATIN CALCIUM. [Concomitant]
     Active Substance: ROSUVASTATIN CALCIUM
  22. HYDROXYCHLOROQUINE SULFATE. [Concomitant]
     Active Substance: HYDROXYCHLOROQUINE SULFATE
  23. NORZYME [Concomitant]
  24. TERBINAFINE. [Concomitant]
     Active Substance: TERBINAFINE
  25. AMBRISENTAN [Suspect]
     Active Substance: AMBRISENTAN
     Dosage: 5 MG, QD
     Route: 048
     Dates: start: 20160402, end: 20160404
  26. DEFLAZACORT [Concomitant]
     Active Substance: DEFLAZACORT
     Dosage: 36 MG, QD
     Dates: start: 20160331, end: 20160409
  27. DEFLAZACORT [Concomitant]
     Active Substance: DEFLAZACORT
     Dosage: 21 MG, QD
     Dates: start: 20160424, end: 20160430
  28. DEFLAZACORT [Concomitant]
     Active Substance: DEFLAZACORT
     Dosage: 12 MG, QD
     Dates: start: 20160515, end: 20160525
  29. DEFLAZACORT [Concomitant]
     Active Substance: DEFLAZACORT
     Dosage: 9 MG, QD
     Dates: start: 20160818, end: 20160927
  30. DEFLAZACORT [Concomitant]
     Active Substance: DEFLAZACORT
     Dosage: 9 MG, QD
     Dates: start: 20161011, end: 20161214
  31. ESCITALOPRAM [Concomitant]
     Active Substance: ESCITALOPRAM OXALATE
  32. MYCOPHENOLATE MOFETIL. [Concomitant]
     Active Substance: MYCOPHENOLATE MOFETIL
  33. CERATASE TABLET [Concomitant]
     Dosage: 1 DF, TID
     Dates: start: 20161114, end: 20161116
  34. TORASEMIDE SODIUM [Concomitant]
     Active Substance: TORSEMIDE
     Dosage: 10 MG, UNK
     Dates: start: 20161026
  35. FUROSEMIDE. [Concomitant]
     Active Substance: FUROSEMIDE
     Dosage: 3 UNK, UNK
     Dates: start: 20160403, end: 20160405
  36. ITOPRIDE HYDROCHLORIDE [Concomitant]
     Active Substance: ITOPRIDE HYDROCHLORIDE
     Dosage: 50 MG, TID
     Dates: start: 20160407, end: 201605
  37. LORAZEPAM. [Concomitant]
     Active Substance: LORAZEPAM
     Dosage: 0.5 MG, QD
     Dates: start: 20160603, end: 20160706
  38. LEVOTHYROXINE SODIUM. [Concomitant]
     Active Substance: LEVOTHYROXINE SODIUM
  39. DEFLAZACORT [Concomitant]
     Active Substance: DEFLAZACORT
     Dosage: 30 MG, QD
     Dates: start: 20160410, end: 20160416
  40. DEFLAZACORT [Concomitant]
     Active Substance: DEFLAZACORT
     Dosage: 18 MG, QD
     Dates: start: 20160501, end: 20160507
  41. DEFLAZACORT [Concomitant]
     Active Substance: DEFLAZACORT
     Dosage: UNK
     Dates: start: 20160623, end: 20160817
  42. ARIPIPRAZOLE. [Concomitant]
     Active Substance: ARIPIPRAZOLE
  43. OLOPATADINE HYDROCHLORIDE. [Concomitant]
     Active Substance: OLOPATADINE HYDROCHLORIDE
     Dosage: 5 MG, TID
     Dates: start: 20161114, end: 20161116
  44. RABEPRAZOLE SODIUM. [Concomitant]
     Active Substance: RABEPRAZOLE SODIUM
  45. AZELASTINE HYDROCHLORIDE. [Concomitant]
     Active Substance: AZELASTINE HYDROCHLORIDE
  46. AMBRISENTAN [Suspect]
     Active Substance: AMBRISENTAN
     Indication: PULMONARY ARTERIAL HYPERTENSION
     Dosage: 10 MG, QD
     Route: 048
     Dates: start: 20160405
  47. APIXABAN [Concomitant]
     Active Substance: APIXABAN
     Dosage: 2.5 MG, BID
     Dates: start: 20161222, end: 20170227
  48. DEFLAZACORT [Concomitant]
     Active Substance: DEFLAZACORT
     Dosage: 12 MG, QD
     Dates: start: 20160928, end: 20161010
  49. MAGNESIUM OXIDE. [Concomitant]
     Active Substance: MAGNESIUM OXIDE
     Dosage: 1 DF, TID
     Dates: start: 20170320, end: 20170325
  50. ALLOPURINOL. [Concomitant]
     Active Substance: ALLOPURINOL
  51. POTASSIUM CITRATE. [Concomitant]
     Active Substance: POTASSIUM CITRATE

REACTIONS (1)
  - Pneumonia [Recovered/Resolved]

NARRATIVE: CASE EVENT DATE: 20170225
